FAERS Safety Report 12704466 (Version 1)
Quarter: 2016Q3

REPORT INFORMATION
  Report Type: Spontaneous
  Country: SK (occurrence: SK)
  Receive Date: 20160831
  Receipt Date: 20160831
  Transmission Date: 20161109
  Serious: Yes (Death)
  Sender: FDA-Public Use
  Company Number: SK-TEVA-687081ROM

PATIENT
  Age: 76 Year
  Sex: Female

DRUGS (5)
  1. MELOXICAM. [Suspect]
     Active Substance: MELOXICAM
     Route: 065
  2. ANOPYRIN [Suspect]
     Active Substance: ASPIRIN
  3. STADAMET [Suspect]
     Active Substance: METFORMIN HYDROCHLORIDE
     Dosage: 2000 MILLIGRAM DAILY; 1-0-1, FOR LONG TIME
  4. TEVAFOS [Concomitant]
  5. CARVEDIGAMMA [Concomitant]

REACTIONS (2)
  - Acute kidney injury [Fatal]
  - Lactic acidosis [Fatal]
